FAERS Safety Report 19419825 (Version 2)
Quarter: 2023Q1

REPORT INFORMATION
  Report Type: Spontaneous
  Country: CA (occurrence: CA)
  Receive Date: 20210615
  Receipt Date: 20230123
  Transmission Date: 20230417
  Serious: Yes (Other)
  Sender: FDA-Public Use
  Company Number: CA-NOVARTISPH-NVSC2021CA133056

PATIENT
  Sex: Female
  Weight: 63 kg

DRUGS (4)
  1. TYKERB [Suspect]
     Active Substance: LAPATINIB DITOSYLATE
     Dosage: UNK
     Route: 065
  2. CAPECITABINE [Suspect]
     Active Substance: CAPECITABINE
     Indication: Product used for unknown indication
     Dosage: 1000 MG, BID (2 EVERY 1 DAYS)
     Route: 065
  3. DEXAMETHASONE [Suspect]
     Active Substance: DEXAMETHASONE
     Indication: Product used for unknown indication
     Dosage: 1 DOSAGE FORM, QD (EVERY 1 DAYS)
     Route: 065
  4. TRASTUZUMAB [Suspect]
     Active Substance: TRASTUZUMAB
     Indication: Product used for unknown indication
     Dosage: 8 MG/KG, Q3W
     Route: 041

REACTIONS (6)
  - Disease progression [Unknown]
  - Dizziness [Unknown]
  - Enteritis [Unknown]
  - Metastases to central nervous system [Unknown]
  - Off label use [Unknown]
  - Product use issue [Unknown]
